FAERS Safety Report 8107486 (Version 4)
Quarter: 2013Q1

REPORT INFORMATION
  Report Type: Spontaneous
  Country: US (occurrence: US)
  Receive Date: 20110825
  Receipt Date: 20130111
  Transmission Date: 20140127
  Serious: Yes (Hospitalization, Other)
  Sender: FDA-Public Use
  Company Number: US-ASTRAZENECA-2011SE49545

PATIENT
  Age: 44 Year
  Sex: Female

DRUGS (1)
  1. NEXIUM [Suspect]
     Route: 048

REACTIONS (7)
  - Ulcer haemorrhage [Unknown]
  - Myocardial infarction [Unknown]
  - Fall [Unknown]
  - Back pain [Unknown]
  - Abdominal pain [Unknown]
  - Nausea [Unknown]
  - Drug dose omission [Unknown]
